FAERS Safety Report 4895147-X (Version None)
Quarter: 2006Q1

REPORT INFORMATION
  Report Type: 
  Country: None (occurrence: None)
  Receive Date: 20060130
  Receipt Date: 20060119
  Transmission Date: 20060701
  Serious: Yes (Other)
  Sender: FDA-Public Use
  Company Number: PHEH2006US01090

PATIENT
  Age: 62 Year
  Sex: Female
  Weight: 90.249 kg

DRUGS (11)
  1. ZOMETA [Suspect]
     Indication: METASTASES TO BONE
     Dosage: 4 MG, EVERY 4 WEEKS
     Dates: start: 20040211, end: 20050921
  2. LETROZOLE [Concomitant]
     Dates: start: 20040201
  3. VALIUM [Concomitant]
  4. PREVACID [Concomitant]
  5. CALAN [Concomitant]
  6. HYZAAR [Concomitant]
  7. GLUCOVANCE [Concomitant]
  8. ACTOS [Concomitant]
  9. ACETYLSALICYLIC ACID [Concomitant]
  10. EFFEXOR [Concomitant]
  11. HYDROCODONE BITARTRATE [Concomitant]

REACTIONS (2)
  - OSTEONECROSIS [None]
  - TOOTH EXTRACTION [None]
